FAERS Safety Report 24399053 (Version 3)
Quarter: 2025Q2

REPORT INFORMATION
  Report Type: Spontaneous
  Country: JP (occurrence: JP)
  Receive Date: 20241004
  Receipt Date: 20250617
  Transmission Date: 20250717
  Serious: Yes (Death, Other)
  Sender: EISAI
  Company Number: JP-Eisai-202406023_LEN-EC_P_1

PATIENT
  Age: 63 Year
  Sex: Female

DRUGS (4)
  1. LENVIMA [Suspect]
     Active Substance: LENVATINIB
     Indication: Endometrial cancer
     Dates: start: 202403, end: 2024
  2. LENVIMA [Suspect]
     Active Substance: LENVATINIB
     Dates: start: 2024, end: 202409
  3. KEYTRUDA [Suspect]
     Active Substance: PEMBROLIZUMAB
     Indication: Endometrial cancer
     Dosage: KEYTRUDA WAS BEING MAINTAINING NOT WITH INTERVAL OF 200MG/3 WEEKS, BUT WITH INTERVALS BETWEEN 3 TO 6 WEEKS
     Dates: start: 202403, end: 202409
  4. LEVOTHYROXINE [Concomitant]
     Active Substance: LEVOTHYROXINE
     Indication: Thyroid disorder

REACTIONS (9)
  - Septic shock [Fatal]
  - Pyelonephritis [Fatal]
  - Immune-mediated pancreatitis [Not Recovered/Not Resolved]
  - Thyroid disorder [Unknown]
  - Nausea [Not Recovered/Not Resolved]
  - Diarrhoea [Unknown]
  - Skin disorder [Not Recovered/Not Resolved]
  - Palmar-plantar erythrodysaesthesia syndrome [Unknown]
  - Blood thyroid stimulating hormone increased [Not Recovered/Not Resolved]

NARRATIVE: CASE EVENT DATE: 20240101
